FAERS Safety Report 19066373 (Version 1)
Quarter: 2021Q1

REPORT INFORMATION
  Report Type: Spontaneous
  Country: DE (occurrence: DE)
  Receive Date: 20210328
  Receipt Date: 20210328
  Transmission Date: 20210420
  Serious: Yes (Life-Threatening, Hospitalization)
  Sender: FDA-Public Use
  Company Number: DE-TEVA-2021-DE-1892584

PATIENT
  Age: 71 Year
  Sex: Female

DRUGS (14)
  1. INSULIN LISPRO [Suspect]
     Active Substance: INSULIN LISPRO
     Dosage: ACCORDING TO PLAN
  2. METAMIZOL [Concomitant]
     Active Substance: METAMIZOLE SODIUM
     Dosage: 20?20?0?20, DROPS , UNIT DOSE : 60 GTT
  3. ALLOPURINOL. [Concomitant]
     Active Substance: ALLOPURINOL
     Dosage: 100 MG, 1.5?0?0?0, UNIT DOSE : 150 MG
  4. IPRAMOL TEVA 0,5MG+2,5MG/2,5ML STERI?NEB [Concomitant]
     Dosage: 4 DOSAGE FORMS DAILY; 0.5|0.2 MG, 1?1?1?1,
     Route: 055
  5. PANTOPRAZOL [Concomitant]
     Active Substance: PANTOPRAZOLE SODIUM
     Dosage: 40 MILLIGRAM DAILY; 1?0?0?0,
  6. FUROSEMID [Concomitant]
     Active Substance: FUROSEMIDE
     Dosage: 125 MG, 1?0.5?0?0, UNIT DOSE : 1.5 DF
  7. ACETYLSALICYLSAURE [Concomitant]
     Active Substance: ASPIRIN
     Dosage: 100 MILLIGRAM DAILY;  0?1?0?0,
  8. SIMVASTATIN. [Concomitant]
     Active Substance: SIMVASTATIN
     Dosage: 20 MILLIGRAM DAILY; 0?0?0?1,
  9. KALINOR 1565,66MG [Concomitant]
     Dosage: 1?1?0?0, 2DF
  10. INSULIN GLARGIN [Suspect]
     Active Substance: INSULIN GLARGINE
     Dosage: 16 IU, ACCORDING TO PLAN
  11. GLAUPAX 250MG [Concomitant]
     Dosage: 750 MILLIGRAM DAILY; 1?1?1?0,
  12. METOPROLOL. [Suspect]
     Active Substance: METOPROLOL
     Dosage: 47.5 MG, 1?0?0?1 , UNIT DOSE : 95 MG
  13. MOVICOL [Concomitant]
     Active Substance: POLYETHYLENE GLYCOL 3350\POTASSIUM CHLORIDE\SODIUM BICARBONATE\SODIUM CHLORIDE
     Dosage: 1 DOSAGE FORMS DAILY; 0?1?0?0,
  14. AMLODIPIN [Concomitant]
     Active Substance: AMLODIPINE BESYLATE
     Dosage: 5 MG, 1?0?0?1, UNIT DOSE : 10 MG

REACTIONS (5)
  - Dizziness [Unknown]
  - Hypoglycaemia [Unknown]
  - Bradycardia [Unknown]
  - General physical health deterioration [Unknown]
  - Dyspnoea [Unknown]
